FAERS Safety Report 6544455-5 (Version None)
Quarter: 2010Q1

REPORT INFORMATION
  Report Type: 
  Country: None (occurrence: None)
  Receive Date: 20100121
  Receipt Date: 20100111
  Transmission Date: 20100710
  Serious: Yes (Hospitalization)
  Sender: FDA-Public Use
  Company Number: CA-JNJFOC-20100104509

PATIENT
  Sex: Male
  Weight: 83 kg

DRUGS (2)
  1. REMICADE [Suspect]
     Indication: CROHN'S DISEASE
     Dosage: 100 MG VIALS
     Route: 042
  2. REMICADE [Suspect]
     Dosage: 100 MG VIALS
     Route: 042

REACTIONS (3)
  - BLADDER NEOPLASM [None]
  - ILEUS [None]
  - THROMBOSIS [None]
